FAERS Safety Report 7711381-5 (Version None)
Quarter: 2011Q3

REPORT INFORMATION
  Report Type: 
  Country: None (occurrence: None)
  Receive Date: 20110810
  Receipt Date: 20110725
  Transmission Date: 20111222
  Serious: Yes (Death)
  Sender: FDA-Public Use
  Company Number: GAM-028-11-AU

PATIENT
  Age: 71 Year
  Sex: Female

DRUGS (1)
  1. OCTAGAM [Suspect]
     Indication: MOTOR NEURONE DISEASE
     Dosage: 400 MG/KG - 1X1/D, INTRAVENOUS
     Route: 042

REACTIONS (2)
  - DEEP VEIN THROMBOSIS [None]
  - PULMONARY EMBOLISM [None]
